FAERS Safety Report 21793319 (Version 1)
Quarter: 2022Q4

REPORT INFORMATION
  Report Type: Spontaneous
  Country: CN (occurrence: CN)
  Receive Date: 20221229
  Receipt Date: 20221229
  Transmission Date: 20230113
  Serious: Yes (Other)
  Sender: FDA-Public Use
  Company Number: CN-SA-SAC20221228000584

PATIENT
  Age: 59 Year
  Sex: Male
  Weight: 58 kg

DRUGS (2)
  1. OXALIPLATIN [Suspect]
     Active Substance: OXALIPLATIN
     Indication: Rectal cancer
     Dosage: 200 MG, QD
     Route: 041
     Dates: start: 20221206
  2. CAPECITABINE [Suspect]
     Active Substance: CAPECITABINE
     Indication: Rectal cancer
     Dosage: 1.5 G, BID
     Route: 048
     Dates: start: 20221206

REACTIONS (3)
  - Liver injury [Recovering/Resolving]
  - Nausea [Recovering/Resolving]
  - Vomiting [Recovering/Resolving]

NARRATIVE: CASE EVENT DATE: 20221206
